FAERS Safety Report 7430851-0 (Version None)
Quarter: 2011Q2

REPORT INFORMATION
  Report Type: 
  Country: None (occurrence: None)
  Receive Date: 20110419
  Receipt Date: 20110419
  Transmission Date: 20111010
  Serious: Yes (Hospitalization)
  Sender: FDA-Public Use
  Company Number: None

PATIENT
  Age: 65 Year
  Sex: Male

DRUGS (1)
  1. COZAAR [Suspect]
     Indication: HYPERTENSION
     Dosage: 100MG 1 QD
     Dates: start: 20110325, end: 20110326

REACTIONS (4)
  - MOVEMENT DISORDER [None]
  - HEART RATE INCREASED [None]
  - NECK PAIN [None]
  - HEADACHE [None]
